FAERS Safety Report 10817953 (Version 5)
Quarter: 2015Q4

REPORT INFORMATION
  Report Type: Spontaneous
  Country: US (occurrence: US)
  Receive Date: 20150218
  Receipt Date: 20151009
  Transmission Date: 20160304
  Serious: Yes (Death, Hospitalization, Other)
  Sender: FDA-Public Use
  Company Number: US-GLAXOSMITHKLINE-US2015GSK007843

PATIENT
  Age: 74 Year
  Sex: Male

DRUGS (26)
  1. CAPTOPRIL. [Concomitant]
     Active Substance: CAPTOPRIL
  2. NORVASC [Suspect]
     Active Substance: AMLODIPINE BESYLATE
     Dosage: 10 MG, QD
  3. LORAZEPAM. [Concomitant]
     Active Substance: LORAZEPAM
  4. ATORVASTATIN CALCIUM. [Concomitant]
     Active Substance: ATORVASTATIN CALCIUM
  5. PROMACTA [Suspect]
     Active Substance: ELTROMBOPAG OLAMINE
     Indication: PRODUCT USED FOR UNKNOWN INDICATION
     Dosage: 50 MG, QD
     Route: 048
     Dates: start: 20141128
  6. LABETALOL [Concomitant]
     Active Substance: LABETALOL\LABETALOL HYDROCHLORIDE
  7. JANUVIA [Concomitant]
     Active Substance: SITAGLIPTIN PHOSPHATE
  8. GLIMEPIRIDE. [Concomitant]
     Active Substance: GLIMEPIRIDE
  9. CARISOPRODOL. [Concomitant]
     Active Substance: CARISOPRODOL
  10. RITUXIMAB [Concomitant]
     Active Substance: RITUXIMAB
  11. AMLODIPINE BESYLATE. [Concomitant]
     Active Substance: AMLODIPINE BESYLATE
  12. ARANESP [Concomitant]
     Active Substance: DARBEPOETIN ALFA
  13. NULECIT [Concomitant]
     Active Substance: SODIUM FERRIC GLUCONATE COMPLEX
  14. PROMACTA [Suspect]
     Active Substance: ELTROMBOPAG OLAMINE
     Dosage: 75 MG, QD
     Route: 048
  15. PROTONIX [Concomitant]
     Active Substance: PANTOPRAZOLE SODIUM
  16. NIASPAN [Concomitant]
     Active Substance: NIACIN
  17. ATORVASTATIN [Concomitant]
     Active Substance: ATORVASTATIN
  18. CENTRUM SILVER [Concomitant]
     Active Substance: MINERALS\VITAMINS
  19. NIACIN ER [Concomitant]
     Active Substance: NIACIN
  20. TIZANIDINE. [Concomitant]
     Active Substance: TIZANIDINE
  21. PIOGLITAZONE HYDROCHLORIDE. [Concomitant]
     Active Substance: PIOGLITAZONE HYDROCHLORIDE
  22. TIZANIDINE HYDROCHLORIDE. [Concomitant]
     Active Substance: TIZANIDINE HYDROCHLORIDE
  23. PROMACTA [Suspect]
     Active Substance: ELTROMBOPAG OLAMINE
     Dosage: UNK
  24. PIOGLITAZONE. [Concomitant]
     Active Substance: PIOGLITAZONE
  25. AMLODIPINE [Concomitant]
     Active Substance: AMLODIPINE BESYLATE
  26. RITUXAN [Concomitant]
     Active Substance: RITUXIMAB
     Dosage: UNK
     Dates: start: 201307

REACTIONS (33)
  - Hypotension [Unknown]
  - Fluid overload [Unknown]
  - Agitation [Unknown]
  - Injury [Unknown]
  - Hypertension [Unknown]
  - Fall [Unknown]
  - Endotracheal intubation [Unknown]
  - Atrial fibrillation [Unknown]
  - Bacteraemia [Unknown]
  - Tachypnoea [Unknown]
  - Central venous catheterisation [Unknown]
  - Condition aggravated [Unknown]
  - Device related infection [Unknown]
  - Acute respiratory failure [Unknown]
  - Haemorrhage [Unknown]
  - Mucous membrane disorder [Unknown]
  - Peripheral swelling [Unknown]
  - Continuous positive airway pressure [Unknown]
  - Anaemia [Unknown]
  - Surgery [Unknown]
  - Sinus congestion [Unknown]
  - Oxygen supplementation [Unknown]
  - Thrombocytopenia [Unknown]
  - Death [Fatal]
  - Hospitalisation [Not Recovered/Not Resolved]
  - Nasopharyngitis [Unknown]
  - Ligament sprain [Unknown]
  - Bacterial test positive [Unknown]
  - Tachycardia [Unknown]
  - Mechanical ventilation [Unknown]
  - Tracheal disorder [Unknown]
  - Pleural effusion [Unknown]
  - Haemoptysis [Unknown]

NARRATIVE: CASE EVENT DATE: 2015
